FAERS Safety Report 6094127-9 (Version None)
Quarter: 2009Q1

REPORT INFORMATION
  Report Type: 
  Country: None (occurrence: None)
  Receive Date: 20090226
  Receipt Date: 20090217
  Transmission Date: 20090719
  Serious: Yes (Other)
  Sender: FDA-Public Use
  Company Number: FR-ROCHE-616259

PATIENT
  Sex: Female

DRUGS (4)
  1. METHOXY POLYETHYLENE GLYCOL-EPOETIN BETA [Suspect]
     Dosage: SECOND INJECTION
     Route: 058
     Dates: start: 20081229
  2. METHOXY POLYETHYLENE GLYCOL-EPOETIN BETA [Suspect]
     Route: 058
     Dates: start: 20081027
  3. NEORECORMON [Concomitant]
     Route: 058
  4. NEORECORMON [Concomitant]
     Route: 058
     Dates: start: 20090209

REACTIONS (1)
  - PRURIGO [None]
